FAERS Safety Report 4874229-2 (Version None)
Quarter: 2006Q1

REPORT INFORMATION
  Report Type: 
  Country: None (occurrence: None)
  Receive Date: 20060103
  Receipt Date: 20060103
  Transmission Date: 20060701
  Serious: Yes (Death, Hospitalization)
  Sender: FDA-Public Use
  Company Number: None

PATIENT
  Age: 70 Year
  Sex: Male
  Weight: 112.5 kg

DRUGS (6)
  1. IRESSA [Suspect]
     Indication: THROAT CANCER
     Dosage: 250 MG DAILY PO
     Route: 048
     Dates: start: 20040523, end: 20051230
  2. PERIACTIN [Concomitant]
  3. NEXIUM [Concomitant]
  4. MAG OXIDE [Concomitant]
  5. COMPAZINE [Concomitant]
  6. TYLENOL W/ CODEINE NO. 3 [Concomitant]

REACTIONS (3)
  - BACK PAIN [None]
  - CHEST PAIN [None]
  - DYSPNOEA [None]
